FAERS Safety Report 5758980-8 (Version None)
Quarter: 2008Q2

REPORT INFORMATION
  Report Type: 
  Country: None (occurrence: None)
  Receive Date: 20080604
  Receipt Date: 20080603
  Transmission Date: 20081010
  Serious: Yes (Hospitalization)
  Sender: FDA-Public Use
  Company Number: DE-BRISTOL-MYERS SQUIBB COMPANY-14196786

PATIENT
  Age: 62 Year
  Sex: Male

DRUGS (1)
  1. DYNACIL COMP [Suspect]
     Route: 048
     Dates: start: 20070213

REACTIONS (1)
  - TYPE 2 DIABETES MELLITUS [None]
